FAERS Safety Report 4274089-7 (Version None)
Quarter: 2004Q1

REPORT INFORMATION
  Report Type: 
  Country: None (occurrence: None)
  Receive Date: 20040120
  Receipt Date: 20040119
  Transmission Date: 20041129
  Serious: Yes (Hospitalization)
  Sender: FDA-Public Use
  Company Number: FR-GLAXOSMITHKLINE-A0493818A

PATIENT
  Age: 66 Year
  Sex: Male

DRUGS (1)
  1. NAVELBINE [Suspect]
     Indication: LUNG NEOPLASM MALIGNANT
     Dosage: 55MG AS DIRECTED
     Route: 042
     Dates: start: 20031118

REACTIONS (1)
  - ANGINA PECTORIS [None]
